FAERS Safety Report 4954349-4 (Version None)
Quarter: 2006Q1

REPORT INFORMATION
  Report Type: 
  Country: None (occurrence: None)
  Receive Date: 20060321
  Receipt Date: 20060316
  Transmission Date: 20060701
  Serious: No
  Sender: FDA-Public Use
  Company Number: C06-035

PATIENT
  Age: 31 Year
  Sex: Female

DRUGS (2)
  1. PHENTERMINE [Suspect]
     Indication: OBESITY
     Dosage: BID
     Dates: start: 20051101, end: 20060309
  2. MULTI-VITAMIN [Concomitant]

REACTIONS (1)
  - BREAST CANCER [None]
